FAERS Safety Report 9853142 (Version 1)
Quarter: 2014Q1

REPORT INFORMATION
  Report Type: Spontaneous
  Country: US (occurrence: None)
  Receive Date: 20140128
  Receipt Date: 20140128
  Transmission Date: 20141002
  Serious: No
  Sender: FDA-Public Use
  Company Number: None

PATIENT
  Sex: Female

DRUGS (11)
  1. COPAXONE [Suspect]
     Indication: MULTIPLE SCLEROSIS
     Route: 058
     Dates: start: 20130823
  2. PERCOCET [Concomitant]
  3. TRAMADOL [Concomitant]
  4. AMOXICILLIN [Concomitant]
  5. TYLENOL [Concomitant]
  6. XANAX [Concomitant]
  7. NABUMETONE [Concomitant]
  8. ZOLOFT [Concomitant]
  9. KLOR-CON [Concomitant]
  10. LOSARTAN [Concomitant]
  11. LOPERAMIDE [Concomitant]

REACTIONS (1)
  - Pruritus [None]
